FAERS Safety Report 8051548-2 (Version None)
Quarter: 2012Q1

REPORT INFORMATION
  Report Type: 
  Country: None (occurrence: None)
  Receive Date: 20120117
  Receipt Date: 20120110
  Transmission Date: 20120608
  Serious: No
  Sender: FDA-Public Use
  Company Number: US-BAYER-2012-003665

PATIENT
  Age: 43 Year
  Sex: Female

DRUGS (1)
  1. FINACEA [Suspect]
     Indication: RASH MACULAR
     Dosage: UNK UNK, ONCE
     Route: 061
     Dates: start: 20120105, end: 20120105

REACTIONS (4)
  - SWELLING FACE [None]
  - UNEVALUABLE EVENT [None]
  - ERYTHEMA [None]
  - SKIN IRRITATION [None]
